FAERS Safety Report 20836440 (Version 1)
Quarter: 2022Q2

REPORT INFORMATION
  Report Type: 
  Country: None (occurrence: None)
  Receive Date: 20220517
  Receipt Date: 20220517
  Transmission Date: 20220721
  Serious: No
  Sender: FDA-Public Use
  Company Number: CA-002147023-NVSC2022CA106012

PATIENT

DRUGS (4)
  1. XOLAIR [Suspect]
     Active Substance: OMALIZUMAB
     Dosage: 300 MG, 4 WEEKS
     Dates: start: 20220411
  2. BENADRYL [Concomitant]
     Active Substance: DIPHENHYDRAMINE HYDROCHLORIDE
     Dosage: 4 DOSAGE FORM, QD
  3. HYDERM (CANADA) [Concomitant]
     Dosage: UNK, UNKNOWN
  4. EPIPEN [Concomitant]
     Active Substance: EPINEPHRINE
     Dosage: UNK, UNKNOWN

REACTIONS (6)
  - Skin disorder [None]
  - Stevens-Johnson syndrome [None]
  - Skin atrophy [None]
  - Extrapyramidal disorder [None]
  - Skin exfoliation [None]
  - Anxiety [None]

NARRATIVE: CASE EVENT DATE: 20220411
